FAERS Safety Report 23221193 (Version 1)
Quarter: 2023Q4

REPORT INFORMATION
  Report Type: Spontaneous
  Country: CN (occurrence: CN)
  Receive Date: 20231123
  Receipt Date: 20231123
  Transmission Date: 20240110
  Serious: Yes (Disabling, Other)
  Sender: FDA-Public Use
  Company Number: CN-SA-SAC20231117001555

PATIENT
  Age: 72 Year
  Sex: Male
  Weight: 67 kg

DRUGS (11)
  1. PLAVIX [Suspect]
     Active Substance: CLOPIDOGREL BISULFATE
     Indication: Lacunar infarction
     Dosage: 75 MG, QD
     Route: 048
     Dates: start: 20230925, end: 20231011
  2. MEROPENEM [Suspect]
     Active Substance: MEROPENEM
     Indication: Pneumonia
     Dosage: 1 G, TID
     Route: 041
     Dates: start: 20230924, end: 20231008
  3. MOXIFLOXACIN HYDROCHLORIDE [Suspect]
     Active Substance: MOXIFLOXACIN HYDROCHLORIDE\MOXIFLOXACIN HYDROCHLORIDE MONOHYDRATE
     Indication: Pneumonia
     Dosage: 0.4 G, QD
     Route: 041
     Dates: start: 20230924, end: 20231004
  4. ROSUVASTATIN CALCIUM [Suspect]
     Active Substance: ROSUVASTATIN CALCIUM
     Indication: Lacunar infarction
     Dosage: 10 MG, QD
     Route: 048
     Dates: start: 20230924, end: 20231002
  5. HARNAL [Suspect]
     Active Substance: TAMSULOSIN HYDROCHLORIDE
     Indication: Benign prostatic hyperplasia
     Dosage: 0.2 MG, QD
     Route: 048
     Dates: start: 20230925, end: 20231009
  6. AMLODIPINE BESYLATE [Suspect]
     Active Substance: AMLODIPINE BESYLATE
     Indication: Hypertension
     Dosage: 5 MG, QD
     Route: 048
     Dates: start: 20230925, end: 20231005
  7. SODIUM CHLORIDE [Concomitant]
     Active Substance: SODIUM CHLORIDE
     Dosage: 0.4 G, QD
     Route: 041
  8. ASPIRIN [Concomitant]
     Active Substance: ASPIRIN
     Indication: Lacunar infarction
     Dosage: 0.1 G, QD
     Route: 048
     Dates: start: 20230925, end: 20231011
  9. PROSCAR [Concomitant]
     Active Substance: FINASTERIDE
     Indication: Benign prostatic hyperplasia
     Dosage: 5 MG, QD
     Route: 048
     Dates: start: 20230925, end: 20231024
  10. HYDROTALCITE [Concomitant]
     Active Substance: HYDROTALCITE
     Indication: Lacunar infarction
     Dosage: 0.5 G, TID
     Route: 048
     Dates: start: 20230925, end: 20231009
  11. REBAMIPIDE [Concomitant]
     Active Substance: REBAMIPIDE
     Indication: Lacunar infarction
     Dosage: 0.1 G, TID
     Route: 048
     Dates: start: 20230924, end: 20231024

REACTIONS (2)
  - Hepatic function abnormal [Recovering/Resolving]
  - Drug-induced liver injury [Recovering/Resolving]

NARRATIVE: CASE EVENT DATE: 20230928
